FAERS Safety Report 7284560-1 (Version None)
Quarter: 2011Q1

REPORT INFORMATION
  Report Type: 
  Country: None (occurrence: None)
  Receive Date: 20110210
  Receipt Date: 20110131
  Transmission Date: 20110831
  Serious: Yes (Hospitalization)
  Sender: FDA-Public Use
  Company Number: US-BIOGENIDEC-2010BI019244

PATIENT
  Age: 63 Year
  Sex: Female
  Weight: 61 kg

DRUGS (1)
  1. TYSABRI [Suspect]
     Indication: MULTIPLE SCLEROSIS
     Route: 042
     Dates: start: 20080114

REACTIONS (7)
  - INTRACARDIAC THROMBUS [None]
  - BACK PAIN [None]
  - NAUSEA [None]
  - HEADACHE [None]
  - SPINAL FUSION SURGERY [None]
  - MOBILITY DECREASED [None]
  - BALANCE DISORDER [None]
